FAERS Safety Report 9371932 (Version 1)
Quarter: 2013Q2

REPORT INFORMATION
  Report Type: Spontaneous
  Country: JP (occurrence: JP)
  Receive Date: 20130627
  Receipt Date: 20130627
  Transmission Date: 20140414
  Serious: Yes (Other)
  Sender: FDA-Public Use
  Company Number: JP-PFIZER INC-2013187882

PATIENT
  Age: 14 Year
  Sex: Male

DRUGS (1)
  1. NORVASC [Suspect]
     Indication: LUPUS NEPHRITIS
     Route: 048

REACTIONS (2)
  - Ascites [Unknown]
  - Off label use [Unknown]
